FAERS Safety Report 5978118-1 (Version None)
Quarter: 2008Q4

REPORT INFORMATION
  Report Type: 
  Country: None (occurrence: None)
  Receive Date: 20081126
  Receipt Date: 20081114
  Transmission Date: 20090506
  Serious: Yes (Hospitalization)
  Sender: FDA-Public Use
  Company Number: 230834K08USA

PATIENT
  Age: 44 Year
  Sex: Female
  Weight: 84 kg

DRUGS (18)
  1. REBIF [Suspect]
     Indication: MULTIPLE SCLEROSIS
     Dosage: 44 MCG, 3 IN 1 WEEKS, SUBCUTANEOUS, 44 MCG, 3 IN 1 WEEKS, SUBCUTANEOUS
     Route: 058
     Dates: start: 20060518, end: 20080701
  2. REBIF [Suspect]
     Indication: MULTIPLE SCLEROSIS
     Dosage: 44 MCG, 3 IN 1 WEEKS, SUBCUTANEOUS, 44 MCG, 3 IN 1 WEEKS, SUBCUTANEOUS
     Route: 058
     Dates: start: 20080701
  3. ACIPHEX [Concomitant]
  4. NEURONTIN [Concomitant]
  5. ASCORBIC ACID [Concomitant]
  6. VITAMIN B (VITAMIN B) [Concomitant]
  7. VITAMIN E [Concomitant]
  8. TRAZODONE HCL [Concomitant]
  9. REGLAN [Concomitant]
  10. SEROQUEL [Concomitant]
  11. ZANAFLEX [Concomitant]
  12. DEPAKOTE [Concomitant]
  13. SANCTURA (TROSPIUM) [Concomitant]
  14. VICODIN [Concomitant]
  15. MIDODRINE HYDROCHLORIDE [Concomitant]
  16. EFFEXOR [Concomitant]
  17. ARICEPT [Concomitant]
  18. CELEBRED (CELECOXIB) [Concomitant]

REACTIONS (2)
  - STAPHYLOCOCCAL INFECTION [None]
  - URINARY TRACT INFECTION [None]
